FAERS Safety Report 7026682-6 (Version None)
Quarter: 2010Q3

REPORT INFORMATION
  Report Type: 
  Country: None (occurrence: None)
  Receive Date: 20100830
  Receipt Date: 20100830
  Transmission Date: 20110219
  Serious: Yes (Other)
  Sender: FDA-Public Use
  Company Number: None

PATIENT

DRUGS (1)
  1. SKIN TISSUE HUMAN [Suspect]

REACTIONS (3)
  - DEVICE FAILURE [None]
  - INFECTION [None]
  - PROCEDURAL SITE REACTION [None]
